FAERS Safety Report 4380111-X (Version None)
Quarter: 2004Q2

REPORT INFORMATION
  Report Type: 
  Country: None (occurrence: None)
  Receive Date: 20040614
  Receipt Date: 20040303
  Transmission Date: 20050107
  Serious: No
  Sender: FDA-Public Use
  Company Number: M04-341-057

PATIENT
  Sex: Male

DRUGS (3)
  1. VELCADE [Suspect]
  2. ARANESP [Concomitant]
  3. ZOMETA [Concomitant]

REACTIONS (1)
  - HYPERTENSION [None]
